FAERS Safety Report 20120596 (Version 2)
Quarter: 2021Q4

REPORT INFORMATION
  Report Type: Spontaneous
  Country: US (occurrence: US)
  Receive Date: 20211126
  Receipt Date: 20211201
  Transmission Date: 20220303
  Serious: No
  Sender: FDA-Public Use
  Company Number: US-BEH-2021138816

PATIENT
  Sex: Female

DRUGS (4)
  1. HIZENTRA [Suspect]
     Active Substance: HUMAN IMMUNOGLOBULIN G
     Indication: Asthma
     Dosage: 300 MILLIGRAM, QOW
     Route: 065
     Dates: start: 201909
  2. HIZENTRA [Suspect]
     Active Substance: HUMAN IMMUNOGLOBULIN G
     Indication: Immunodeficiency common variable
  3. DUPILUMAB [Suspect]
     Active Substance: DUPILUMAB
     Indication: Immunodeficiency common variable
     Dosage: 300 MILLIGRAM, QOW
     Route: 058
     Dates: start: 201909
  4. DUPILUMAB [Suspect]
     Active Substance: DUPILUMAB
     Indication: Asthma

REACTIONS (4)
  - Injection site reaction [Unknown]
  - Recalled product administered [Unknown]
  - No adverse event [Unknown]
  - Off label use [Unknown]
